FAERS Safety Report 18356325 (Version 3)
Quarter: 2021Q2

REPORT INFORMATION
  Report Type: Report from Study
  Country: US (occurrence: US)
  Receive Date: 20201007
  Receipt Date: 20210409
  Transmission Date: 20210717
  Serious: Yes (Other)
  Sender: FDA-Public Use
  Company Number: US-TAKEDA-2019TUS040228

PATIENT
  Age: 31 Year
  Sex: Female
  Weight: 109 kg

DRUGS (3)
  1. CETIRIZINE [Concomitant]
     Active Substance: CETIRIZINE HYDROCHLORIDE
     Indication: MULTIPLE ALLERGIES
  2. BRIGATINIB [Suspect]
     Active Substance: BRIGATINIB
     Indication: NON-SMALL CELL LUNG CANCER
     Dosage: 180 MILLIGRAM, QD
     Route: 048
     Dates: start: 201509
  3. MULTIVITAMIN                       /07504101/ [Concomitant]
     Active Substance: VITAMINS

REACTIONS (18)
  - Hypoaesthesia [Unknown]
  - Cognitive disorder [Unknown]
  - Depression [Unknown]
  - Dizziness [Unknown]
  - Memory impairment [Unknown]
  - Paraesthesia [Unknown]
  - Weight increased [Unknown]
  - Fatigue [Unknown]
  - Nausea [Unknown]
  - Weight decreased [Unknown]
  - Sleep apnoea syndrome [Unknown]
  - Non-small cell lung cancer [Recovering/Resolving]
  - Urinary retention [Unknown]
  - Visual impairment [Unknown]
  - Drug resistance [Unknown]
  - Hypersomnia [Unknown]
  - Type 2 diabetes mellitus [Unknown]
  - Vitamin D decreased [Unknown]

NARRATIVE: CASE EVENT DATE: 20190625
